FAERS Safety Report 13158000 (Version 1)
Quarter: 2017Q1

REPORT INFORMATION
  Report Type: Spontaneous
  Country: US (occurrence: US)
  Receive Date: 20170124
  Receipt Date: 20170124
  Transmission Date: 20170428
  Serious: Yes (Other)
  Sender: FDA-Public Use
  Company Number: None

PATIENT
  Age: 66 Year
  Sex: Female
  Weight: 69.75 kg

DRUGS (2)
  1. BETIMOL [Suspect]
     Active Substance: TIMOLOL
     Indication: INTRAOCULAR PRESSURE INCREASED
     Dosage: ?          QUANTITY:5 DROP(S);?
     Route: 047
     Dates: start: 20170120, end: 20170121
  2. ADVIL [Concomitant]
     Active Substance: IBUPROFEN

REACTIONS (9)
  - Activities of daily living impaired [None]
  - Screaming [None]
  - Chest discomfort [None]
  - Dyspnoea [None]
  - Lethargy [None]
  - Presyncope [None]
  - Nightmare [None]
  - Dizziness [None]
  - Therapy cessation [None]

NARRATIVE: CASE EVENT DATE: 20170120
